FAERS Safety Report 24456284 (Version 2)
Quarter: 2024Q4

REPORT INFORMATION
  Report Type: Report from Study
  Country: US (occurrence: US)
  Receive Date: 20241017
  Receipt Date: 20241018
  Transmission Date: 20250114
  Serious: No
  Sender: ROCHE
  Company Number: US-ROCHE-3509912

PATIENT
  Sex: Female

DRUGS (1)
  1. RITUXAN [Suspect]
     Active Substance: RITUXIMAB
     Indication: Myopathy
     Dosage: FOR IMMUNOLOGY ;ONGOING: YES
     Route: 065

REACTIONS (2)
  - Joint stiffness [Not Recovered/Not Resolved]
  - Off label use [Unknown]
